FAERS Safety Report 15925901 (Version 2)
Quarter: 2019Q1

REPORT INFORMATION
  Report Type: Spontaneous
  Country: US (occurrence: US)
  Receive Date: 20190205
  Receipt Date: 20190219
  Transmission Date: 20190417
  Serious: No
  Sender: FDA-Public Use
  Company Number: US-ALLERGAN-1844392US

PATIENT

DRUGS (6)
  1. HYALURONIDASE [Concomitant]
     Active Substance: HYALURONIDASE
     Indication: SKIN WRINKLING
     Dosage: UNK UNK, SINGLE
     Route: 065
     Dates: start: 20180903, end: 20180903
  2. BOTOX [Suspect]
     Active Substance: ONABOTULINUMTOXINA
     Indication: SKIN WRINKLING
     Dosage: UNK, SINGLE
     Route: 030
  3. HYALURONIDASE [Concomitant]
     Active Substance: HYALURONIDASE
     Dosage: UNK, SINGLE
     Route: 065
     Dates: start: 20180906, end: 20180906
  4. JUVEDERM VOLLURE XC [Concomitant]
     Indication: SKIN WRINKLING
     Dosage: UNK, SINGLE
     Route: 065
  5. BOTOX [Suspect]
     Active Substance: ONABOTULINUMTOXINA
     Indication: SKIN WRINKLING
  6. JUVEDERM VOLLURE XC [Concomitant]
     Indication: SKIN WRINKLING

REACTIONS (2)
  - Facial asymmetry [Unknown]
  - Off label use [Unknown]
